FAERS Safety Report 5199655-6 (Version None)
Quarter: 2007Q1

REPORT INFORMATION
  Report Type: 
  Country: None (occurrence: None)
  Receive Date: 20070103
  Receipt Date: 20070103
  Transmission Date: 20070707
  Serious: Yes (Life-Threatening, Disabling)
  Sender: FDA-Public Use
  Company Number: None

PATIENT
  Age: 74 Year
  Sex: Female
  Weight: 90.1 kg

DRUGS (1)
  1. HURRICAINE SPRAY [Suspect]
     Indication: BRONCHIAL DISORDER
     Dosage: UNKNOWN
     Dates: start: 20061229, end: 20061229

REACTIONS (1)
  - OXYGEN SATURATION DECREASED [None]
